FAERS Safety Report 9434234 (Version 1)
Quarter: 2013Q3

REPORT INFORMATION
  Report Type: Spontaneous
  Country: US (occurrence: None)
  Receive Date: 20130730
  Receipt Date: 20130730
  Transmission Date: 20140515
  Serious: Yes (Life-Threatening, Hospitalization)
  Sender: FDA-Public Use
  Company Number: None

PATIENT
  Age: 48 Year
  Sex: Female
  Weight: 62.37 kg

DRUGS (1)
  1. LISINOPRIL 10 MG [Suspect]
     Indication: HYPERTENSION
     Route: 048
     Dates: start: 20110620, end: 20130719

REACTIONS (1)
  - Angioedema [None]
